FAERS Safety Report 12465186 (Version 3)
Quarter: 2016Q4

REPORT INFORMATION
  Report Type: Spontaneous
  Country: GB (occurrence: GB)
  Receive Date: 20160614
  Receipt Date: 20161103
  Transmission Date: 20170207
  Serious: Yes (Hospitalization)
  Sender: FDA-Public Use
  Company Number: GB-MYLANLABS-2016M1023851

PATIENT

DRUGS (7)
  1. SERETIDE [Concomitant]
     Active Substance: FLUTICASONE PROPIONATE\SALMETEROL XINAFOATE
     Indication: CHRONIC OBSTRUCTIVE PULMONARY DISEASE
     Dosage: 1 DF, BID (250 ACCUHALER)
     Route: 065
  2. SALBUTAMOL                         /00139502/ [Concomitant]
     Indication: CHRONIC OBSTRUCTIVE PULMONARY DISEASE
     Dosage: UNK (100 METERED DOSE INHALER)
     Route: 065
  3. ITRACONAZOLE. [Suspect]
     Active Substance: ITRACONAZOLE
     Indication: ASPERGILLUS INFECTION
     Dosage: 300 MG, UNK (200MG IN THE MORNING, 100MG AT NIGHT.)
     Route: 048
  4. ANORO ELLIPTA [Concomitant]
     Active Substance: UMECLIDINIUM BROMIDE\VILANTEROL TRIFENATATE
     Indication: CHRONIC OBSTRUCTIVE PULMONARY DISEASE
     Dosage: 1 DF, BID
     Route: 065
  5. CALCICHEW D3 [Concomitant]
     Active Substance: CALCIUM\CHOLECALCIFEROL
     Dosage: 1 DF, BID
     Route: 065
  6. OMEPRAZOLE. [Concomitant]
     Active Substance: OMEPRAZOLE
     Indication: HIATUS HERNIA
     Dosage: 20 MG, QD
     Route: 065
  7. SPATONE [Concomitant]
     Indication: IRON DEFICIENCY
     Dosage: 40 ML, QD
     Route: 065

REACTIONS (6)
  - Spinal column injury [Unknown]
  - Balance disorder [Unknown]
  - Pyrexia [Recovered/Resolved]
  - Nausea [Recovering/Resolving]
  - Hepatic cyst [Recovering/Resolving]
  - Pollakiuria [Recovering/Resolving]
